FAERS Safety Report 7728350-1 (Version None)
Quarter: 2011Q3

REPORT INFORMATION
  Report Type: 
  Country: None (occurrence: None)
  Receive Date: 20110905
  Receipt Date: 20110901
  Transmission Date: 20111222
  Serious: Yes (Death, Hospitalization, Other)
  Sender: FDA-Public Use
  Company Number: PHFR2011GB04806

PATIENT
  Sex: Female

DRUGS (2)
  1. CLOZAPINE [Suspect]
     Indication: SCHIZOPHRENIA
     Dosage: 150 MG/DAY
     Route: 048
     Dates: start: 20110722, end: 20110808
  2. AMISULPRIDE [Suspect]
     Dosage: 200 MG/DAY
     Route: 048

REACTIONS (7)
  - TACHYCARDIA [None]
  - TROPONIN T INCREASED [None]
  - CHOKING [None]
  - MYOCARDITIS [None]
  - C-REACTIVE PROTEIN INCREASED [None]
  - SELF-INDUCED VOMITING [None]
  - MENTAL IMPAIRMENT [None]
